FAERS Safety Report 5710042-1 (Version None)
Quarter: 2008Q2

REPORT INFORMATION
  Report Type: 
  Country: None (occurrence: None)
  Receive Date: 20080418
  Receipt Date: 20071017
  Transmission Date: 20081010
  Serious: No
  Sender: FDA-Public Use
  Company Number: US-ASTRAZENECA-2007UW22783

PATIENT
  Age: 78 Year
  Sex: Female
  Weight: 70.3 kg

DRUGS (4)
  1. TOPROL-XL [Suspect]
     Indication: HYPERTENSION
     Dates: start: 20030101
  2. PLAVIX [Concomitant]
  3. DIGOXIN [Concomitant]
  4. TRICOR [Concomitant]

REACTIONS (2)
  - DERMATITIS ACNEIFORM [None]
  - SLEEP APNOEA SYNDROME [None]
